FAERS Safety Report 21827808 (Version 2)
Quarter: 2023Q1

REPORT INFORMATION
  Report Type: Spontaneous
  Country: US (occurrence: US)
  Receive Date: 20230106
  Receipt Date: 20230201
  Transmission Date: 20230418
  Serious: Yes (Other)
  Sender: FDA-Public Use
  Company Number: US-JNJFOC-20230100682

PATIENT

DRUGS (1)
  1. TYLENOL EXTRA STRENGTH [Suspect]
     Active Substance: ACETAMINOPHEN
     Indication: Spondylitis
     Dosage: TAKING TYLENOL CAPLETS EVERY DAY
     Route: 048

REACTIONS (4)
  - Foreign body in throat [Unknown]
  - Wrong technique in product usage process [Unknown]
  - Product size issue [Unknown]
  - Headache [Unknown]
